FAERS Safety Report 8882589 (Version 2)
Quarter: 2012Q4

REPORT INFORMATION
  Report Type: 
  Country: US (occurrence: US)
  Receive Date: 20121105
  Receipt Date: 20121114
  Transmission Date: 20130627
  Serious: Yes (Other)
  Sender: FDA-Public Use
  Company Number: US-009507513-1210USA013847

PATIENT
  Age: 26 Year
  Sex: Male

DRUGS (1)
  1. INTRONA [Suspect]
     Indication: MALIGNANT MELANOMA

REACTIONS (1)
  - Metastatic neoplasm [Not Recovered/Not Resolved]
